FAERS Safety Report 6337192-3 (Version None)
Quarter: 2009Q3

REPORT INFORMATION
  Report Type: 
  Country: None (occurrence: None)
  Receive Date: 20090831
  Receipt Date: 20090826
  Transmission Date: 20100115
  Serious: Yes (Other)
  Sender: FDA-Public Use
  Company Number: 2009SP015044

PATIENT
  Age: 79 Year
  Sex: Female
  Weight: 80 kg

DRUGS (6)
  1. TEMODAL [Suspect]
     Indication: GLIOBLASTOMA
     Dosage: 380 MG; QD; PO
     Route: 048
     Dates: start: 20090505, end: 20090510
  2. TEMODAL [Suspect]
     Indication: GLIOBLASTOMA
     Dosage: 380 MG; QD; PO
     Route: 048
     Dates: start: 20090203
  3. KEPPRA [Concomitant]
  4. MEDROL [Concomitant]
  5. RISPERDAL [Concomitant]
  6. TENORMIN [Concomitant]

REACTIONS (1)
  - ALANINE AMINOTRANSFERASE INCREASED [None]
